FAERS Safety Report 9324214 (Version 1)
Quarter: 2013Q2

REPORT INFORMATION
  Report Type: Spontaneous
  Country: US (occurrence: US)
  Receive Date: 20130603
  Receipt Date: 20130603
  Transmission Date: 20140414
  Serious: No
  Sender: FDA-Public Use
  Company Number: US-009507513-1305USA011653

PATIENT
  Sex: Female
  Weight: 54.42 kg

DRUGS (11)
  1. MIRALAX [Suspect]
     Indication: CONSTIPATION
     Dosage: 17 G, HS
     Route: 048
     Dates: start: 2010
  2. MIRALAX [Suspect]
     Indication: MEDICAL OBSERVATION
  3. METFORMIN [Concomitant]
     Indication: DIABETES MELLITUS
     Dosage: UNK, UNKNOWN
  4. GLIMEPIRIDE [Concomitant]
     Indication: DIABETES MELLITUS
     Dosage: UNK, UNKNOWN
  5. LOSARTAN POTASSIUM [Concomitant]
     Indication: HYPERTENSION
     Dosage: 100 MG, UNKNOWN
  6. FEXOFENADINE HYDROCHLORIDE [Concomitant]
     Indication: PRODUCT USED FOR UNKNOWN INDICATION
     Dosage: 180 MG, UNKNOWN
  7. MONTELUKAST [Concomitant]
     Indication: PRODUCT USED FOR UNKNOWN INDICATION
     Dosage: 10 MG, UNKNOWN
  8. FLUTICASONE [Concomitant]
     Indication: SINUS CONGESTION
     Dosage: UNK, UNKNOWN
  9. FAMOTIDINE [Concomitant]
     Indication: ULCER
     Dosage: 40 MG, UNKNOWN
  10. SUCRALFATE [Concomitant]
     Indication: ULCER
     Dosage: 1 G, UNKNOWN
  11. METHOTREXATE [Concomitant]
     Indication: POLYCHONDRITIS
     Dosage: 8 DF, QW

REACTIONS (3)
  - Incorrect drug administration duration [Unknown]
  - Drug effect decreased [Unknown]
  - Product quality issue [Unknown]
